FAERS Safety Report 11312968 (Version 1)
Quarter: 2015Q3

REPORT INFORMATION
  Report Type: Spontaneous
  Country: US (occurrence: US)
  Receive Date: 20150727
  Receipt Date: 20150727
  Transmission Date: 20151125
  Serious: No
  Sender: FDA-Public Use
  Company Number: US-ABBVIE-14P-163-1296410-00

PATIENT
  Age: 22 Year
  Sex: Female

DRUGS (3)
  1. SYNTHROID [Suspect]
     Active Substance: LEVOTHYROXINE SODIUM
     Indication: HYPOTHYROIDISM
     Dosage: DOSAGE INCREASED
     Route: 065
  2. SYNTHROID [Suspect]
     Active Substance: LEVOTHYROXINE SODIUM
     Dosage: RETURNED TO PREVIOUS DOSAGE
     Route: 065
     Dates: end: 201409
  3. SYNTHROID [Suspect]
     Active Substance: LEVOTHYROXINE SODIUM
     Dosage: ORIGINAL DOSE
     Route: 065
     Dates: start: 201409

REACTIONS (8)
  - Pain [Not Recovered/Not Resolved]
  - Pain [Unknown]
  - Muscle twitching [Unknown]
  - Tendon injury [Unknown]
  - Thyroid function test abnormal [Unknown]
  - Musculoskeletal pain [Not Recovered/Not Resolved]
  - Joint crepitation [Unknown]
  - Tremor [Unknown]

NARRATIVE: CASE EVENT DATE: 201409
